FAERS Safety Report 8885977 (Version 1)
Quarter: 2012Q4

REPORT INFORMATION
  Report Type: 
  Country: US (occurrence: US)
  Receive Date: 20121105
  Receipt Date: 20121105
  Transmission Date: 20130627
  Serious: No
  Sender: FDA-Public Use
  Company Number: US-009507513-1210USA009908

PATIENT
  Sex: Female

DRUGS (10)
  1. PEGINTRON [Suspect]
     Dosage: 120 mcg/0.5 ml
     Route: 058
  2. ALEVE [Concomitant]
     Dosage: 220 mg, UNK
  3. PRISTIQ [Concomitant]
     Dosage: 50 mg, UNK
  4. ONDANSETRON [Concomitant]
     Dosage: 24 mg, UNK
  5. OMEPRAZOLE [Concomitant]
     Dosage: 20 mg, UNK
  6. LEVOTHYROXINE SODIUM [Concomitant]
     Dosage: 88 Microgram, UNK
  7. LACTULOSE [Concomitant]
     Dosage: Formulation: SOL, 10 gm/15
  8. VITAMIN B COMPLEX [Concomitant]
  9. CYANOCOBALAMIN [Concomitant]
     Dosage: 100 Microgram, UNK
  10. OS-CAL (CALCIUM CARBONATE) [Concomitant]
     Dosage: 500/tab 200 D-3

REACTIONS (2)
  - Injection site rash [Unknown]
  - Vision blurred [Unknown]
